FAERS Safety Report 13069808 (Version 2)
Quarter: 2017Q1

REPORT INFORMATION
  Report Type: Spontaneous
  Country: US (occurrence: US)
  Receive Date: 20161228
  Receipt Date: 20170210
  Transmission Date: 20170428
  Serious: Yes (Other)
  Sender: FDA-Public Use
  Company Number: US-TEVA-722923USA

PATIENT
  Sex: Male
  Weight: 68 kg

DRUGS (1)
  1. FENTANYL. [Suspect]
     Active Substance: FENTANYL
     Indication: OESOPHAGEAL CARCINOMA
     Route: 062

REACTIONS (5)
  - Chest pain [Unknown]
  - Heart rate increased [Unknown]
  - Flushing [Unknown]
  - Drug ineffective [Unknown]
  - Hypertension [Recovered/Resolved]

NARRATIVE: CASE EVENT DATE: 2016
